FAERS Safety Report 10733921 (Version 1)
Quarter: 2015Q1

REPORT INFORMATION
  Report Type: Spontaneous
  Country: US (occurrence: US)
  Receive Date: 20150123
  Receipt Date: 20150123
  Transmission Date: 20150721
  Serious: No
  Sender: FDA-Public Use
  Company Number: US-ASTRAZENECA-2014SE85190

PATIENT
  Age: 71 Year
  Sex: Male
  Weight: 108.9 kg

DRUGS (14)
  1. FUROSEMIDE. [Concomitant]
     Active Substance: FUROSEMIDE
     Route: 048
  2. SPIRIVA [Concomitant]
     Active Substance: TIOTROPIUM BROMIDE MONOHYDRATE
     Dosage: DAILY
     Route: 055
  3. SYMBICORT [Suspect]
     Active Substance: BUDESONIDE\FORMOTEROL FUMARATE DIHYDRATE
     Indication: CHRONIC OBSTRUCTIVE PULMONARY DISEASE
     Dosage: 320 UG,TWO TIMES A DAY
     Route: 055
     Dates: start: 2012
  4. LOVASTATIN. [Concomitant]
     Active Substance: LOVASTATIN
     Route: 048
  5. LISINOPRIL. [Suspect]
     Active Substance: LISINOPRIL
     Route: 048
  6. TIMOLOL [Concomitant]
     Active Substance: TIMOLOL
     Dosage: 0.5
     Route: 047
  7. ATENOLOL. [Suspect]
     Active Substance: ATENOLOL
     Route: 048
  8. GLIPIZIDE. [Concomitant]
     Active Substance: GLIPIZIDE
     Route: 048
  9. TRAZODONE [Concomitant]
     Active Substance: TRAZODONE HYDROCHLORIDE
     Route: 048
  10. TRAMADOL [Concomitant]
     Active Substance: TRAMADOL
     Route: 048
  11. AMLODIPINE [Concomitant]
     Active Substance: AMLODIPINE BESYLATE
     Route: 048
  12. INDOMETHACIN. [Concomitant]
     Active Substance: INDOMETHACIN
     Route: 048
  13. ALLOPURINAL [Concomitant]
     Route: 048
  14. POTASSIUM [Concomitant]
     Active Substance: POTASSIUM
     Route: 048

REACTIONS (3)
  - Chronic obstructive pulmonary disease [Not Recovered/Not Resolved]
  - Blood pressure increased [Not Recovered/Not Resolved]
  - Dyspnoea [Recovered/Resolved with Sequelae]

NARRATIVE: CASE EVENT DATE: 2014
